FAERS Safety Report 5970213-6 (Version None)
Quarter: 2008Q4

REPORT INFORMATION
  Report Type: 
  Country: None (occurrence: None)
  Receive Date: 20081126
  Receipt Date: 20081015
  Transmission Date: 20090506
  Serious: No
  Sender: FDA-Public Use
  Company Number: US-ABBOTT-08P-163-0482310-00

PATIENT
  Sex: Male

DRUGS (6)
  1. SIMCOR [Suspect]
     Indication: HIGH DENSITY LIPOPROTEIN DECREASED
     Dosage: ONE DAILY AT BEDTIME
     Dates: start: 20080924
  2. ACETYLSALICYLIC ACID SRT [Concomitant]
     Indication: DRUG USE FOR UNKNOWN INDICATION
     Dosage: AT BEDTIME
  3. DILTIAZEM HYDROCHLORIDE [Concomitant]
     Indication: ATRIAL FIBRILLATION
  4. VICODIN [Concomitant]
     Indication: PAIN
  5. ESCITALOPRAM OXALATE [Concomitant]
     Indication: DEPRESSION
  6. ZOLPIDEM TARTRATE [Concomitant]
     Indication: INSOMNIA
     Dosage: AT BEDTIME, AS NEEDED

REACTIONS (4)
  - HOT FLUSH [None]
  - NASOPHARYNGITIS [None]
  - NIGHT SWEATS [None]
  - PYREXIA [None]
